FAERS Safety Report 9845009 (Version 1)
Quarter: 2014Q1

REPORT INFORMATION
  Report Type: Spontaneous
  Country: US (occurrence: None)
  Receive Date: 20140122
  Receipt Date: 20140122
  Transmission Date: 20141002
  Serious: Yes (Death)
  Sender: FDA-Public Use
  Company Number: 2014AP000378

PATIENT
  Age: 44 Year
  Sex: Male

DRUGS (9)
  1. TRAMADOL HYDROCHLORIDE TABLETS [Suspect]
     Route: 048
  2. QUETIAPINE FUMARATE [Suspect]
     Route: 048
  3. METHADONE [Suspect]
     Route: 048
  4. OXYCODONE [Suspect]
     Route: 048
  5. HYDROCODONE [Suspect]
     Route: 048
  6. CODEINE [Suspect]
     Route: 048
  7. CLONAZEPAM TABLETS, USP [Suspect]
     Route: 048
  8. BENZTROPINE [Suspect]
     Route: 048
  9. ACETAMINOPHEN [Suspect]
     Route: 048

REACTIONS (1)
  - Drug abuse [None]
